FAERS Safety Report 6180592-5 (Version None)
Quarter: 2009Q2

REPORT INFORMATION
  Report Type: 
  Country: None (occurrence: None)
  Receive Date: 20090506
  Receipt Date: 20090504
  Transmission Date: 20091009
  Serious: Yes (Hospitalization)
  Sender: FDA-Public Use
  Company Number: DE-WYE-G03614309

PATIENT
  Sex: Male
  Weight: 100 kg

DRUGS (2)
  1. TREVILOR RETARD [Suspect]
     Dosage: 5 CAPSULES (OVERDOSE AMOUNT 750 MG)
     Route: 048
     Dates: start: 20090503, end: 20090503
  2. ETHANOL [Suspect]
     Dosage: UNKNOWN AMOUNT
     Route: 048
     Dates: start: 20090503, end: 20090503

REACTIONS (3)
  - DRUG ABUSE [None]
  - FEELING DRUNK [None]
  - INTENTIONAL OVERDOSE [None]
